FAERS Safety Report 8493116-4 (Version None)
Quarter: 2012Q3

REPORT INFORMATION
  Report Type: 
  Country: None (occurrence: None)
  Receive Date: 20120706
  Receipt Date: 20120627
  Transmission Date: 20120928
  Serious: Yes (Death)
  Sender: FDA-Public Use
  Company Number: JP-JNJFOC-20120611928

PATIENT
  Age: 46 Year
  Sex: Female

DRUGS (15)
  1. BIO-THREE [Concomitant]
     Route: 048
  2. AMOBAN [Concomitant]
     Route: 048
  3. RISPERDAL [Suspect]
     Indication: SCHIZOPHRENIA
     Route: 048
  4. LENDORMIN [Concomitant]
     Route: 048
  5. RISPERDAL [Suspect]
     Route: 048
  6. PURSENNID [Concomitant]
     Route: 048
  7. DEPAS [Concomitant]
     Route: 048
  8. UNKNOWN MEDICATION [Concomitant]
     Route: 065
  9. LEXOTAN [Concomitant]
     Route: 048
  10. RISPERDAL CONSTA [Suspect]
     Indication: SCHIZOPHRENIA
     Route: 030
     Dates: start: 20100801, end: 20120525
  11. SILECE [Concomitant]
     Route: 048
  12. AKINETON [Concomitant]
     Route: 048
  13. LONASEN [Concomitant]
     Route: 048
  14. PROMAZINE HYDROCHLORIDE [Concomitant]
     Route: 048
  15. CLONAZEPAM [Concomitant]
     Route: 048

REACTIONS (1)
  - DEATH [None]
